FAERS Safety Report 6307733-0 (Version None)
Quarter: 2009Q3

REPORT INFORMATION
  Report Type: 
  Country: None (occurrence: None)
  Receive Date: 20090812
  Receipt Date: 20090812
  Transmission Date: 20100115
  Serious: Yes (Hospitalization)
  Sender: FDA-Public Use
  Company Number: None

PATIENT
  Age: 35 Year
  Sex: Female
  Weight: 81.5 kg

DRUGS (1)
  1. TIGECYCLINE 50 MG WYETH [Suspect]
     Indication: DECUBITUS ULCER
     Dosage: 50 MG TWICE DAILY IV
     Route: 042

REACTIONS (1)
  - PANCREATITIS [None]
